FAERS Safety Report 22830619 (Version 4)
Quarter: 2023Q4

REPORT INFORMATION
  Report Type: Report from Study
  Country: CL (occurrence: CL)
  Receive Date: 20230817
  Receipt Date: 20231213
  Transmission Date: 20240110
  Serious: Yes (Hospitalization, Disabling, Other)
  Sender: FDA-Public Use
  Company Number: CL-002147023-NVSC2023CL177327

PATIENT
  Age: 74 Year
  Sex: Male

DRUGS (3)
  1. COSENTYX [Suspect]
     Active Substance: SECUKINUMAB
     Indication: Psoriasis
     Dosage: 150 MG, QMO (2 X150MG)
     Route: 058
     Dates: start: 20230703
  2. COSENTYX [Suspect]
     Active Substance: SECUKINUMAB
     Dosage: 150 MG, QW (1 X150MG)
     Route: 058
  3. COSENTYX [Suspect]
     Active Substance: SECUKINUMAB
     Dosage: 150 MG, QMO (1 X 150MG)
     Route: 058

REACTIONS (15)
  - Psoriasis [Recovering/Resolving]
  - Arthralgia [Unknown]
  - Gait disturbance [Unknown]
  - Autoimmune disorder [Unknown]
  - Colon cancer [Unknown]
  - Small intestine carcinoma [Unknown]
  - Prostate cancer [Unknown]
  - Malignant melanoma [Unknown]
  - Hepatic cirrhosis [Unknown]
  - Skin disorder [Unknown]
  - Pain [Unknown]
  - Malaise [Unknown]
  - Metatarsalgia [Unknown]
  - Flank pain [Unknown]
  - Product use issue [Unknown]
